FAERS Safety Report 10244523 (Version 1)
Quarter: 2014Q1

REPORT INFORMATION
  Report Type: Spontaneous
  Country: US (occurrence: None)
  Receive Date: 20140306
  Receipt Date: 20140306
  Transmission Date: 20141002
  Serious: Yes (Life-Threatening, Hospitalization, Other)
  Sender: FDA-Public Use
  Company Number: 163-21880-13022077

PATIENT
  Age: 91 Year
  Sex: Male

DRUGS (11)
  1. REVLIMID (LENALIDOMIDE) (10 MILLIGRAM, CAPSULES) [Suspect]
     Indication: MYELODYSPLASTIC SYNDROME
     Dosage: 10 MG, 28 IN 28 D, PO
     Route: 048
     Dates: start: 20120918
  2. ZOVIRAX (ACICLOVIR) [Concomitant]
  3. CIPROFLOXACIN (CIPROFLOXACIN) [Concomitant]
  4. DIFLUCAN (FLUCONAZOLE) [Concomitant]
  5. IMODIUM (LOPERAMIDE) [Concomitant]
  6. ACYCLOVIR (ACICLOVIR) (ACICLOVIR) [Concomitant]
  7. ASA (ACETYLSALICYLIC ACID) [Concomitant]
  8. ASA (ACETYLSALICYLIC ACID) [Concomitant]
  9. MULTIVITAMINS [Concomitant]
  10. LEVOTHYROXINE [Concomitant]
  11. MELATONIN [Concomitant]

REACTIONS (5)
  - Neutropenia [None]
  - Cellulitis [None]
  - Anaemia [None]
  - Platelet count decreased [None]
  - Condition aggravated [None]
